FAERS Safety Report 5372548-7 (Version None)
Quarter: 2007Q2

REPORT INFORMATION
  Report Type: 
  Country: None (occurrence: None)
  Receive Date: 20070626
  Receipt Date: 20070611
  Transmission Date: 20071010
  Serious: Yes (Hospitalization)
  Sender: FDA-Public Use
  Company Number: 2007RR-08061

PATIENT
  Age: 31 Year
  Sex: Female

DRUGS (1)
  1. MINOCYCLINE HYDROCHLORIDE [Suspect]
     Indication: ACNE
     Dosage: ORAL
     Route: 048

REACTIONS (16)
  - BIOPSY SKIN ABNORMAL [None]
  - BRAIN OEDEMA [None]
  - DISEASE RECURRENCE [None]
  - DRUG RASH WITH EOSINOPHILIA AND SYSTEMIC SYMPTOMS [None]
  - EOSINOPHILIA [None]
  - EYELID OEDEMA [None]
  - FACE OEDEMA [None]
  - HEPATIC ENZYME INCREASED [None]
  - LICHENOID KERATOSIS [None]
  - LYMPH NODE PAIN [None]
  - LYMPHADENOPATHY [None]
  - MENINGITIS [None]
  - NAUSEA [None]
  - OEDEMA [None]
  - SCLERAL DISORDER [None]
  - TOXIC SKIN ERUPTION [None]
